FAERS Safety Report 26126569 (Version 1)
Quarter: 2025Q4

REPORT INFORMATION
  Report Type: Spontaneous
  Country: EU (occurrence: EU)
  Receive Date: 20251205
  Receipt Date: 20251205
  Transmission Date: 20260118
  Serious: Yes (Other)
  Sender: TEVA
  Company Number: None

PATIENT
  Age: 48 Year
  Sex: Female

DRUGS (3)
  1. EPIRUBICIN [Suspect]
     Active Substance: EPIRUBICIN
     Indication: Invasive ductal breast carcinoma
     Route: 042
     Dates: start: 20241204, end: 20250204
  2. TRASTUZUMAB [Suspect]
     Active Substance: TRASTUZUMAB
     Indication: Invasive ductal breast carcinoma
     Dosage: TIME INTERVAL: CYCLICAL: 6 TREATMENTS
     Route: 058
     Dates: start: 20250610
  3. TRASTUZUMAB [Suspect]
     Active Substance: TRASTUZUMAB
     Indication: Invasive ductal breast carcinoma
     Dosage: TIME INTERVAL: CYCLICAL: TRASTUZUMAB ((MAMMALFER/HAMSTER/CHO CELLS))
     Route: 042
     Dates: start: 20250225, end: 20250429

REACTIONS (2)
  - Ventricular dysfunction [Not Recovered/Not Resolved]
  - Myocarditis [Not Recovered/Not Resolved]

NARRATIVE: CASE EVENT DATE: 20251107
